FAERS Safety Report 18989401 (Version 2)
Quarter: 2021Q2

REPORT INFORMATION
  Report Type: Spontaneous
  Country: AU (occurrence: AU)
  Receive Date: 20210309
  Receipt Date: 20210401
  Transmission Date: 20210717
  Serious: Yes (Hospitalization, Other)
  Sender: FDA-Public Use
  Company Number: AU-B.I. PHARMACEUTICALS,INC./RIDGEFIELD-2021-BI-083956

PATIENT
  Age: 43 Year
  Sex: Female
  Weight: 132 kg

DRUGS (3)
  1. METFORMIN [Concomitant]
     Active Substance: METFORMIN HYDROCHLORIDE
     Indication: PRODUCT USED FOR UNKNOWN INDICATION
     Route: 065
  2. JARDIAMET [Suspect]
     Active Substance: EMPAGLIFLOZIN\METFORMIN HYDROCHLORIDE
     Indication: DIABETES MELLITUS
     Dosage: JARDIAMET DOSE 5/1000 MG TWICE DAILY
     Route: 065
     Dates: start: 20200309
  3. OZEMPIC [Concomitant]
     Active Substance: SEMAGLUTIDE
     Indication: PRODUCT USED FOR UNKNOWN INDICATION

REACTIONS (16)
  - Fatigue [Unknown]
  - Renal impairment [Unknown]
  - Hydronephrosis [Unknown]
  - Retching [Unknown]
  - Myalgia [Unknown]
  - Urinary tract candidiasis [Recovering/Resolving]
  - Sepsis [Unknown]
  - Hyperglycaemia [Unknown]
  - Headache [Unknown]
  - Acute kidney injury [Unknown]
  - Chills [Unknown]
  - Bladder candidiasis [Unknown]
  - Urine flow decreased [Unknown]
  - Nausea [Unknown]
  - Decreased appetite [Unknown]
  - Orthostatic hypotension [Unknown]

NARRATIVE: CASE EVENT DATE: 202008
